FAERS Safety Report 14987218 (Version 1)
Quarter: 2018Q2

REPORT INFORMATION
  Report Type: Spontaneous
  Country: DE (occurrence: DE)
  Receive Date: 20180608
  Receipt Date: 20180608
  Transmission Date: 20180711
  Serious: Yes (Hospitalization)
  Sender: FDA-Public Use
  Company Number: DE-TEVA-2018-DE-903110

PATIENT
  Age: 81 Year
  Sex: Male
  Weight: 58 kg

DRUGS (13)
  1. ACETYLSALICYLSAEURE [Concomitant]
     Active Substance: ASPIRIN
     Dosage: 1-0-0-0
     Route: 048
  2. SIMVASTATIN. [Concomitant]
     Active Substance: SIMVASTATIN
     Dosage: 0-0-1-0
     Route: 048
  3. MIRTAZAPIN [Concomitant]
     Active Substance: MIRTAZAPINE
     Dosage: 0-0-1-0
     Route: 048
  4. KALIUM [Concomitant]
     Active Substance: POTASSIUM CHLORIDE
     Dosage: 20 MVAL, 1-1-1-0
     Route: 048
  5. TORASEMID [Suspect]
     Active Substance: TORSEMIDE
     Dosage: 1-0-0-0
     Route: 048
  6. ULTIBRO BREEZHALER 85MIKROGRAMM/43MIKROGRAMM [Concomitant]
     Dosage: 85|43 ?G, 1-0-0-0, DOSIERAEROSOL
     Route: 055
  7. TAMSULOSIN [Concomitant]
     Active Substance: TAMSULOSIN
     Dosage: 1-0-0-0
     Route: 048
  8. APIXABAN [Concomitant]
     Active Substance: APIXABAN
     Dosage: 1-0-1-0
     Route: 048
  9. PANTOPRAZOL [Concomitant]
     Active Substance: PANTOPRAZOLE SODIUM
     Dosage: 0-0-1-0
     Route: 048
  10. BUDECORT 200 NOVOLIZER [Concomitant]
     Dosage: 1-0-1-0, DOSIERAEROSOL
     Route: 055
  11. BISOPROLOL [Concomitant]
     Active Substance: BISOPROLOL
     Dosage: 2.5 MG, 1-0-0-0, TABLETTEN
     Route: 048
  12. ACETYLCYSTEINE. [Concomitant]
     Active Substance: ACETYLCYSTEINE
     Dosage: 1-0-0-0, BRAUSETABLETTEN
     Route: 048
  13. LORAZEPAM. [Concomitant]
     Active Substance: LORAZEPAM
     Dosage: IF NECESSARY
     Route: 048

REACTIONS (3)
  - Dehydration [Unknown]
  - Electrolyte imbalance [Unknown]
  - General physical health deterioration [Unknown]
